FAERS Safety Report 9564868 (Version 2)
Quarter: 2013Q4

REPORT INFORMATION
  Report Type: Report from Study
  Country: NL (occurrence: NL)
  Receive Date: 20130930
  Receipt Date: 20131205
  Transmission Date: 20140711
  Serious: Yes (Death, Other)
  Sender: FDA-Public Use
  Company Number: PHHY2013NL107471

PATIENT
  Age: 63 Year
  Sex: Male

DRUGS (6)
  1. ZOMETA [Suspect]
     Indication: PROSTATE CANCER METASTATIC
     Dosage: 4 MG, PER 100 ML; ONCE EVERY 4 WEEKS
     Route: 042
  2. ZOMETA [Suspect]
     Dosage: 4 MG, PER 100 ML; ONCE EVERY 4 WEEKS
     Route: 042
     Dates: start: 20130123
  3. ZOMETA [Suspect]
     Dosage: 4 MG, PER 100 ML; ONCE EVERY 4 WEEKS
     Route: 042
     Dates: start: 20130826
  4. ZOMETA [Suspect]
     Dosage: 4 MG, PER 100 ML; ONCE EVERY 4 WEEKS
     Route: 042
     Dates: start: 20130925
  5. ZOMETA [Suspect]
     Dosage: 4 MG, PER 100 ML; ONCE EVERY 4 WEEKS
     Route: 042
     Dates: start: 20131021
  6. ZOMETA [Suspect]
     Dosage: 4 MG, PER 100 ML; ONCE EVERY 4 WEEKS
     Route: 042
     Dates: start: 20131121

REACTIONS (3)
  - Cardiac failure [Fatal]
  - Coronary artery occlusion [Unknown]
  - Syncope [Recovered/Resolved]
